FAERS Safety Report 24534751 (Version 2)
Quarter: 2024Q4

REPORT INFORMATION
  Report Type: Spontaneous
  Country: FR (occurrence: FR)
  Receive Date: 20241022
  Receipt Date: 20241121
  Transmission Date: 20250115
  Serious: No
  Sender: ORGANON
  Company Number: FR-ORGANON-O2410FRA001755

PATIENT
  Age: 20 Year
  Sex: Female

DRUGS (1)
  1. NEXPLANON [Suspect]
     Active Substance: ETONOGESTREL
     Dosage: 1 IMPLANT
     Route: 059
     Dates: start: 20240604

REACTIONS (2)
  - Menstrual disorder [Recovering/Resolving]
  - Breast pain [Not Recovered/Not Resolved]

NARRATIVE: CASE EVENT DATE: 20240101
